FAERS Safety Report 7422896-1 (Version None)
Quarter: 2011Q2

REPORT INFORMATION
  Report Type: 
  Country: None (occurrence: None)
  Receive Date: 20110419
  Receipt Date: 20110413
  Transmission Date: 20111010
  Serious: Yes (Other)
  Sender: FDA-Public Use
  Company Number: US-B.I. PHARMACEUTICALS,INC./RIDGEFIELD-2011-BP-06211BP

PATIENT
  Sex: Female
  Weight: 56.7 kg

DRUGS (4)
  1. SPIRIVA [Suspect]
     Indication: CHRONIC OBSTRUCTIVE PULMONARY DISEASE
     Dosage: 18 MCG
     Route: 055
  2. COTREL [Concomitant]
     Indication: HYPERTENSION
  3. METOPROLOL [Concomitant]
     Indication: HYPERTENSION
  4. CLONIDINE [Concomitant]
     Indication: HYPERTENSION

REACTIONS (1)
  - MACULAR DEGENERATION [None]
